FAERS Safety Report 9363462 (Version 3)
Quarter: 2014Q1

REPORT INFORMATION
  Report Type: Report from Study
  Country: AU (occurrence: AU)
  Receive Date: 20130624
  Receipt Date: 20140117
  Transmission Date: 20141002
  Serious: Yes (Life-Threatening, Hospitalization)
  Sender: FDA-Public Use
  Company Number: AU-MPIJNJ-2013-03975

PATIENT
  Sex: 0

DRUGS (11)
  1. VELCADE [Suspect]
     Indication: PLASMA CELL MYELOMA
     Route: 065
  2. CYCLOPHOSPHAMIDE [Suspect]
     Indication: PLASMA CELL MYELOMA
     Dosage: 550 MG, UNK
     Route: 048
     Dates: start: 20130506, end: 20130520
  3. DEXAMETHASONE [Suspect]
     Indication: PLASMA CELL MYELOMA
     Dosage: 2.4 MG, UNK
     Route: 065
     Dates: start: 20130506, end: 20130516
  4. PERINDOPRIL [Concomitant]
     Indication: HYPERTENSION
     Dosage: 5 MG, UNK
  5. ALLOPURINOL [Concomitant]
     Indication: HYPERURICAEMIA
     Dosage: 300 MG, UNK
     Dates: start: 20130505
  6. VALACICLOVIR [Concomitant]
     Indication: INFECTION PROPHYLAXIS
     Dosage: 500 MG, UNK
     Dates: start: 20130506
  7. BACTRIM [Concomitant]
     Indication: INFECTION PROPHYLAXIS
     Dosage: UNK
     Dates: start: 20130505
  8. ZOMETA [Concomitant]
     Indication: BONE DISORDER
     Dosage: UNK
     Dates: start: 20130508
  9. RANITIDINE [Concomitant]
     Indication: GASTROOESOPHAGEAL REFLUX DISEASE
     Dosage: 150 MG, UNK
  10. MAXOLON [Concomitant]
  11. COLOXYL                            /00061602/ [Concomitant]

REACTIONS (1)
  - Adverse drug reaction [Recovered/Resolved]
